FAERS Safety Report 20208653 (Version 1)
Quarter: 2021Q4

REPORT INFORMATION
  Report Type: Spontaneous
  Country: US (occurrence: None)
  Receive Date: 20211218
  Receipt Date: 20211218
  Transmission Date: 20220303
  Serious: No
  Sender: FDA-Public Use
  Company Number: None

PATIENT
  Age: 23 Year
  Sex: Female
  Weight: 65.77 kg

DRUGS (2)
  1. HERBALS [Suspect]
     Active Substance: HERBALS
     Indication: Molluscum contagiosum
     Dates: start: 20211128, end: 20211201
  2. HERBALS [Concomitant]
     Active Substance: HERBALS
     Dates: start: 20211128, end: 20211201

REACTIONS (4)
  - Vulvovaginal swelling [None]
  - Vulvovaginal erythema [None]
  - Vulvovaginal discomfort [None]
  - Skin abrasion [None]

NARRATIVE: CASE EVENT DATE: 20211201
